FAERS Safety Report 20808019 (Version 1)
Quarter: 2022Q2

REPORT INFORMATION
  Report Type: Spontaneous
  Country: US (occurrence: None)
  Receive Date: 20220509
  Receipt Date: 20220509
  Transmission Date: 20220720
  Serious: Yes (Death)
  Sender: FDA-Public Use
  Company Number: None

PATIENT
  Age: 41 Year
  Sex: Female

DRUGS (1)
  1. REGEN-COV [Suspect]
     Active Substance: CASIRIVIMAB\IMDEVIMAB

REACTIONS (6)
  - Pyrexia [None]
  - Fatigue [None]
  - Cough [None]
  - Respiratory distress [None]
  - Cardiac arrest [None]
  - Haemoptysis [None]

NARRATIVE: CASE EVENT DATE: 20220104
